FAERS Safety Report 9832127 (Version 1)
Quarter: 2014Q1

REPORT INFORMATION
  Report Type: Spontaneous
  Country: US (occurrence: US)
  Receive Date: 20140121
  Receipt Date: 20140121
  Transmission Date: 20141002
  Serious: No
  Sender: FDA-Public Use
  Company Number: US-TEVA-457141USA

PATIENT
  Age: 18 Year
  Sex: Male

DRUGS (1)
  1. NUVIGIL [Suspect]
     Dates: start: 20140111

REACTIONS (3)
  - Headache [Unknown]
  - Pyrexia [Unknown]
  - Rash [Unknown]
